FAERS Safety Report 7910253-0 (Version None)
Quarter: 2011Q4

REPORT INFORMATION
  Report Type: 
  Country: None (occurrence: None)
  Receive Date: 20111111
  Receipt Date: 20111102
  Transmission Date: 20120403
  Serious: Yes (Hospitalization)
  Sender: FDA-Public Use
  Company Number: FI-JNJFOC-20100705163

PATIENT
  Age: 77 Year
  Sex: Male
  Weight: 108 kg

DRUGS (1)
  1. GOLIMUMAB [Suspect]
     Indication: RHEUMATOID ARTHRITIS
     Route: 058
     Dates: start: 20100325

REACTIONS (1)
  - WOUND INFECTION [None]
